FAERS Safety Report 5368685-3 (Version None)
Quarter: 2007Q2

REPORT INFORMATION
  Report Type: 
  Country: None (occurrence: None)
  Receive Date: 20070625
  Receipt Date: 20070320
  Transmission Date: 20071010
  Serious: No
  Sender: FDA-Public Use
  Company Number: US-BRISTOL-MYERS SQUIBB COMPANY-13719463

PATIENT
  Sex: Female
  Weight: 49 kg

DRUGS (9)
  1. ORENCIA [Suspect]
     Dates: start: 20070301, end: 20070301
  2. CORTEF [Concomitant]
  3. FLORINEF [Concomitant]
  4. LIPITOR [Concomitant]
  5. MOTRIN [Concomitant]
  6. CALCIUM CHLORIDE [Concomitant]
  7. NEXIUM [Concomitant]
  8. REMICADE [Concomitant]
  9. CHONDROITIN SULFATE + GLUCOSAMINE [Concomitant]

REACTIONS (2)
  - ACCIDENTAL EXPOSURE [None]
  - DERMATITIS CONTACT [None]
